FAERS Safety Report 8760920 (Version 2)
Quarter: 2012Q4

REPORT INFORMATION
  Report Type: 
  Country: ZA (occurrence: ZA)
  Receive Date: 20120830
  Receipt Date: 20120917
  Transmission Date: 20130627
  Serious: No
  Sender: FDA-Public Use
  Company Number: PHHY2012ZA074150

PATIENT
  Age: 59 Year
  Sex: Female

DRUGS (3)
  1. RIFAMPICIN [Suspect]
  2. NILOTINIB [Suspect]
     Dosage: UNK
  3. EFAVIRENZ [Suspect]

REACTIONS (5)
  - Neutropenia [Unknown]
  - Drug level changed [Unknown]
  - Drug reaction with eosinophilia and systemic symptoms [None]
  - Tuberculosis [None]
  - Hepatotoxicity [None]
